FAERS Safety Report 16500014 (Version 1)
Quarter: 2019Q3

REPORT INFORMATION
  Report Type: Spontaneous
  Country: DE (occurrence: DE)
  Receive Date: 20190701
  Receipt Date: 20190701
  Transmission Date: 20191004
  Serious: Yes (Life-Threatening, Hospitalization)
  Sender: FDA-Public Use
  Company Number: DE-TEVA-2019-DE-1070866

PATIENT
  Age: 22 Year
  Sex: Female

DRUGS (3)
  1. ORTOTON, 750 MG, FILMTABLETTE [Suspect]
     Active Substance: METHOCARBAMOL
     Indication: MUSCLE TIGHTNESS
  2. ORTOTON, 750 MG, FILMTABLETTE [Suspect]
     Active Substance: METHOCARBAMOL
     Indication: NECK PAIN
     Dosage: 6 DOSAGE FORMS DAILY; 2 DF, TID
     Route: 048
     Dates: start: 20190326, end: 20190326
  3. DICLOFENAC [Suspect]
     Active Substance: DICLOFENAC
     Indication: PRODUCT USED FOR UNKNOWN INDICATION
     Dosage: 3 DOSAGE FORMS DAILY; 1 DF, TID
     Route: 048
     Dates: start: 20190327

REACTIONS (3)
  - Loss of consciousness [Recovered/Resolved]
  - Syncope [Recovered/Resolved]
  - Seizure [Recovered/Resolved]

NARRATIVE: CASE EVENT DATE: 20190326
